FAERS Safety Report 24195138 (Version 1)
Quarter: 2024Q3

REPORT INFORMATION
  Report Type: Spontaneous
  Country: US (occurrence: US)
  Receive Date: 20240809
  Receipt Date: 20240809
  Transmission Date: 20241016
  Serious: No
  Sender: ANI
  Company Number: US-ANIPHARMA-2024-US-033054

PATIENT
  Age: 56 Year
  Sex: Male

DRUGS (10)
  1. CORTICOTROPIN [Suspect]
     Active Substance: CORTICOTROPIN
     Indication: Gout
     Dosage: 80 UNITS (1ML); FREQUENCY UNSPECIFIED
     Route: 058
  2. PROTONIX [Concomitant]
     Active Substance: PANTOPRAZOLE SODIUM
  3. ZYVOX [Concomitant]
     Active Substance: LINEZOLID
  4. AMLODIPINE BESYLATE [Concomitant]
     Active Substance: AMLODIPINE BESYLATE
  5. CELECOXIB [Concomitant]
     Active Substance: CELECOXIB
  6. COLCHICINE [Concomitant]
     Active Substance: COLCHICINE
  7. VITAMIN D [Concomitant]
     Active Substance: VITAMIN D NOS
  8. FOLIC ACID [Concomitant]
     Active Substance: FOLIC ACID
  9. GABAPENTIN [Concomitant]
     Active Substance: GABAPENTIN
  10. LISINOPRIL [Concomitant]
     Active Substance: LISINOPRIL

REACTIONS (1)
  - Drug ineffective [Unknown]
